FAERS Safety Report 5058186-4 (Version None)
Quarter: 2006Q3

REPORT INFORMATION
  Report Type: 
  Country: None (occurrence: None)
  Receive Date: 20060721
  Receipt Date: 20060712
  Transmission Date: 20061208
  Serious: Yes (Death)
  Sender: FDA-Public Use
  Company Number: FR-BRISTOL-MYERS SQUIBB COMPANY-13441258

PATIENT
  Age: 25 Year
  Sex: Male

DRUGS (2)
  1. CORGARD [Suspect]
     Indication: HYPERTROPHIC CARDIOMYOPATHY
     Dosage: DURATION: MANY YEARS
     Route: 048
     Dates: end: 20060701
  2. ATENOLOL [Suspect]
     Indication: HYPERTROPHIC CARDIOMYOPATHY
     Route: 048
     Dates: start: 20060706, end: 20060710

REACTIONS (1)
  - SUDDEN DEATH [None]
